FAERS Safety Report 25177243 (Version 1)
Quarter: 2025Q2

REPORT INFORMATION
  Report Type: Report from Study
  Country: US (occurrence: US)
  Receive Date: 20250409
  Receipt Date: 20250409
  Transmission Date: 20250717
  Serious: Yes (Other)
  Sender: Pyros Pharmaceuticals
  Company Number: US-PYROS PHARMACEUTICALS, INC-2024-PYROSUS000143

PATIENT
  Age: 6 Year
  Sex: Male
  Weight: 22.676 kg

DRUGS (9)
  1. VIGAFYDE [Suspect]
     Active Substance: VIGABATRIN
     Indication: Infantile spasms
     Dates: start: 20241117, end: 2024
  2. VIGAFYDE [Suspect]
     Active Substance: VIGABATRIN
     Dates: start: 2024, end: 20250102
  3. VIGAFYDE [Suspect]
     Active Substance: VIGABATRIN
     Dates: start: 20250103, end: 20250104
  4. VIGAFYDE [Suspect]
     Active Substance: VIGABATRIN
     Dates: start: 20250105, end: 20250106
  5. VIGAFYDE [Suspect]
     Active Substance: VIGABATRIN
     Dates: start: 20250107
  6. CARNITOR [Concomitant]
     Active Substance: LEVOCARNITINE
     Indication: Product used for unknown indication
     Route: 065
  7. LACTULOSE [Concomitant]
     Active Substance: LACTULOSE
     Indication: Product used for unknown indication
     Route: 065
  8. VALPROIC ACID [Concomitant]
     Active Substance: VALPROIC ACID
     Indication: Product used for unknown indication
     Route: 065
  9. ZONISADE [Concomitant]
     Active Substance: ZONISAMIDE
     Indication: Product used for unknown indication
     Route: 065

REACTIONS (3)
  - Seizure [Unknown]
  - Drug ineffective [Unknown]
  - Off label use [Unknown]

NARRATIVE: CASE EVENT DATE: 20241117
